FAERS Safety Report 8483152-6 (Version None)
Quarter: 2012Q3

REPORT INFORMATION
  Report Type: 
  Country: None (occurrence: None)
  Receive Date: 20120702
  Receipt Date: 20120625
  Transmission Date: 20120928
  Serious: Yes (Hospitalization)
  Sender: FDA-Public Use
  Company Number: US-ELI_LILLY_AND_COMPANY-US201204005525

PATIENT
  Sex: Male

DRUGS (2)
  1. CIALIS [Suspect]
     Dosage: 10 MG, UNKNOWN
     Dates: start: 20120401
  2. CIALIS [Suspect]
     Indication: ERECTILE DYSFUNCTION
     Dosage: 20 MG, QD

REACTIONS (5)
  - PROSTATE CANCER [None]
  - DRUG INEFFECTIVE [None]
  - INCORRECT DOSE ADMINISTERED [None]
  - WRONG TECHNIQUE IN DRUG USAGE PROCESS [None]
  - NERVE INJURY [None]
